FAERS Safety Report 5636725-X (Version None)
Quarter: 2008Q1

REPORT INFORMATION
  Report Type: 
  Country: None (occurrence: None)
  Receive Date: 20080225
  Receipt Date: 20080222
  Transmission Date: 20080703
  Serious: Yes (Other)
  Sender: FDA-Public Use
  Company Number: FR-ELI_LILLY_AND_COMPANY-FR200802005171

PATIENT
  Sex: Female

DRUGS (7)
  1. ZYPREXA [Suspect]
     Indication: BIPOLAR DISORDER
     Dosage: 5 MG, DAILY (1/D)
     Route: 048
     Dates: end: 20071102
  2. LOVENOX [Concomitant]
     Dosage: 4000 IU, DAILY (1/D)
     Route: 058
  3. NEXIUM [Concomitant]
     Indication: HIATUS HERNIA
     Dosage: 20 MG, DAILY (1/D)
     Route: 048
  4. ESCITALOPRAM [Concomitant]
     Indication: DEPRESSION
     Dosage: 10 MG, DAILY (1/D)
     Route: 048
     Dates: start: 20071012
  5. ZOLPIDEM [Concomitant]
     Indication: INSOMNIA
     Dosage: 1 D/F, DAILY (1/D)
     Route: 048
  6. XANAX [Concomitant]
     Dosage: 0.25 MG, DAILY (1/D)
     Route: 048
  7. ZECLAR [Concomitant]
     Dosage: 500 MG, 2/D
     Route: 065
     Dates: start: 20071107

REACTIONS (4)
  - AGRANULOCYTOSIS [None]
  - DERMATITIS BULLOUS [None]
  - INFECTION [None]
  - RASH ERYTHEMATOUS [None]
